FAERS Safety Report 4601732-2 (Version None)
Quarter: 2005Q1

REPORT INFORMATION
  Report Type: 
  Country: None (occurrence: None)
  Receive Date: 20050128
  Receipt Date: 20041118
  Transmission Date: 20050727
  Serious: No
  Sender: FDA-Public Use
  Company Number: WAES 0411USA03165

PATIENT
  Sex: Male

DRUGS (4)
  1. EMEND [Suspect]
     Indication: PROPHYLAXIS OF NAUSEA AND VOMITING
     Dosage: 125 MG/ 1X/ PO;  80 MG/DAILY/PO
     Route: 048
  2. EMEND [Suspect]
     Indication: PROPHYLAXIS OF NAUSEA AND VOMITING
     Dosage: 125 MG/ 1X/ PO;  80 MG/DAILY/PO
     Route: 048
  3. CAMPTOSAR [Concomitant]
  4. FLUOROURACIL [Concomitant]

REACTIONS (1)
  - DRUG INEFFECTIVE [None]
